FAERS Safety Report 8125345-3 (Version None)
Quarter: 2012Q1

REPORT INFORMATION
  Report Type: 
  Country: None (occurrence: None)
  Receive Date: 20120209
  Receipt Date: 20120206
  Transmission Date: 20120608
  Serious: Yes (Other)
  Sender: FDA-Public Use
  Company Number: US-GLAXOSMITHKLINE-A0965045A

PATIENT
  Sex: Male

DRUGS (1)
  1. ALBUTEROL [Suspect]
     Indication: ASTHMA
     Route: 055

REACTIONS (1)
  - ASTHMA [None]
